FAERS Safety Report 8761055 (Version 2)
Quarter: 2012Q4

REPORT INFORMATION
  Report Type: Report from Study
  Country: US (occurrence: US)
  Receive Date: 20120830
  Receipt Date: 20121228
  Transmission Date: 20130627
  Serious: Yes (Other)
  Sender: FDA-Public Use
  Company Number: US-US-EMD SERONO, INC.-7155590

PATIENT
  Age: 40 Year
  Sex: Female
  Weight: 100 kg

DRUGS (9)
  1. REBIF [Suspect]
     Indication: MULTIPLE SCLEROSIS
     Route: 058
     Dates: start: 201203
  2. CYMBALTA [Suspect]
     Indication: FIBROMYALGIA
     Route: 048
     Dates: start: 20110908, end: 20120901
  3. CYMBALTA [Suspect]
     Indication: DEPRESSION
  4. TRAMADOL [Suspect]
     Indication: FIBROMYALGIA
  5. RELPAX [Suspect]
     Indication: MIGRAINE
     Route: 048
  6. GABAPENTIN [Concomitant]
     Indication: PRODUCT USED FOR UNKNOWN INDICATION
  7. VENLAFAXINE [Concomitant]
     Indication: FIBROMYALGIA
     Route: 048
  8. VENLAFAXINE [Concomitant]
     Indication: DEPRESSION
  9. AMITIZA [Concomitant]
     Indication: IRRITABLE BOWEL SYNDROME

REACTIONS (10)
  - Serotonin syndrome [Recovered/Resolved]
  - Migraine [Not Recovered/Not Resolved]
  - Balance disorder [Not Recovered/Not Resolved]
  - Urinary retention [Not Recovered/Not Resolved]
  - Memory impairment [Not Recovered/Not Resolved]
  - Breast tenderness [Not Recovered/Not Resolved]
  - Injection site bruising [Not Recovered/Not Resolved]
  - Injection site pain [Not Recovered/Not Resolved]
  - Injection site discolouration [Not Recovered/Not Resolved]
  - Arthralgia [Not Recovered/Not Resolved]
